FAERS Safety Report 17246779 (Version 1)
Quarter: 2020Q1

REPORT INFORMATION
  Report Type: Spontaneous
  Country: RS (occurrence: RS)
  Receive Date: 20200108
  Receipt Date: 20200108
  Transmission Date: 20200409
  Serious: Yes (Life-Threatening, Other)
  Sender: FDA-Public Use
  Company Number: RS-GLAXOSMITHKLINE-RS2020GSK000689

PATIENT
  Age: 36 Year
  Sex: Female

DRUGS (6)
  1. MIDAZOLAM HYDROCHLORIDE. [Concomitant]
     Active Substance: MIDAZOLAM HYDROCHLORIDE
     Indication: PRODUCT USED FOR UNKNOWN INDICATION
     Dosage: 0.02 MG/KG
     Route: 042
  2. RINGERS LACTATE [Concomitant]
     Active Substance: CALCIUM CHLORIDE\POTASSIUM CHLORIDE\SODIUM LACTATE
     Indication: FLUID REPLACEMENT
     Dosage: 10 MG/KG
  3. PROPOFOL. [Concomitant]
     Active Substance: PROPOFOL
     Indication: ANAESTHESIA
     Dosage: 2 MG/KG
  4. ALFENTANIL. [Concomitant]
     Active Substance: ALFENTANIL
     Indication: ANAESTHESIA
     Dosage: 0.01 MG/KG
  5. LOW MOLECULAR WEIGHT HEPARIN [Concomitant]
     Active Substance: UNSPECIFIED INGREDIENT
     Indication: PRODUCT USED FOR UNKNOWN INDICATION
     Dosage: UNK
  6. DICLOFENAC SODIUM. [Suspect]
     Active Substance: DICLOFENAC SODIUM
     Indication: ANAESTHESIA
     Dosage: 75 MG
     Route: 042

REACTIONS (24)
  - Blood pressure decreased [Unknown]
  - Airway peak pressure increased [Recovered/Resolved]
  - Lip oedema [Unknown]
  - Periorbital oedema [Unknown]
  - Heart rate increased [Unknown]
  - Supraventricular extrasystoles [Unknown]
  - Oral discharge [Unknown]
  - Eyelid oedema [Unknown]
  - Angioedema [Unknown]
  - Hypotension [Unknown]
  - Oxygen saturation decreased [Unknown]
  - Skin irritation [Unknown]
  - Anaphylactic reaction [Unknown]
  - Tachycardia [Unknown]
  - Rhonchi [Unknown]
  - Bronchospasm [Unknown]
  - Blood immunoglobulin E increased [Unknown]
  - Somnolence [Unknown]
  - Ventricular extrasystoles [Unknown]
  - End-tidal CO2 decreased [Unknown]
  - Rhinorrhoea [Unknown]
  - Drug hypersensitivity [Unknown]
  - Peak nasal inspiratory flow increased [Recovered/Resolved]
  - Face oedema [Unknown]
